FAERS Safety Report 18088762 (Version 1)
Quarter: 2020Q3

REPORT INFORMATION
  Report Type: Spontaneous
  Country: US (occurrence: US)
  Receive Date: 20200729
  Receipt Date: 20200729
  Transmission Date: 20201103
  Serious: Yes (Death, Disabling, Other)
  Sender: FDA-Public Use
  Company Number: US-PURDUE-USA-2020-0159211

PATIENT
  Sex: Female

DRUGS (1)
  1. OXYCONTIN [Suspect]
     Active Substance: OXYCODONE HYDROCHLORIDE
     Indication: PRODUCT USED FOR UNKNOWN INDICATION
     Route: 048

REACTIONS (9)
  - Drug dependence [Unknown]
  - Loss of personal independence in daily activities [None]
  - Road traffic accident [Unknown]
  - Hypersomnia [Unknown]
  - Unevaluable event [Unknown]
  - Cardiac failure [Unknown]
  - Cognitive disorder [Unknown]
  - Overdose [Unknown]
  - Death [Fatal]
